FAERS Safety Report 17806518 (Version 1)
Quarter: 2020Q2

REPORT INFORMATION
  Report Type: Spontaneous
  Country: US (occurrence: US)
  Receive Date: 20200519
  Receipt Date: 20200519
  Transmission Date: 20200714
  Serious: Yes (Hospitalization)
  Sender: FDA-Public Use
  Company Number: None

PATIENT
  Age: 65 Year
  Sex: Male

DRUGS (1)
  1. DAPTOMYCIN (DAPTOMYCIN 250MG/VIL INJ) [Suspect]
     Active Substance: DAPTOMYCIN
     Indication: INFECTION
     Dosage: ?          OTHER ROUTE:IV?
     Route: 042
     Dates: start: 20200331, end: 20200416

REACTIONS (2)
  - Myositis [None]
  - Blood creatine phosphokinase increased [None]

NARRATIVE: CASE EVENT DATE: 20200416
